FAERS Safety Report 9682244 (Version 1)
Quarter: 2013Q4

REPORT INFORMATION
  Report Type: Spontaneous
  Country: TR (occurrence: TR)
  Receive Date: 20131112
  Receipt Date: 20131112
  Transmission Date: 20140711
  Serious: Yes (Other)
  Sender: FDA-Public Use
  Company Number: TR-PAR PHARMACEUTICAL, INC-2013SCPR007752

PATIENT
  Sex: 0

DRUGS (2)
  1. CLONAZEPAM [Suspect]
     Indication: CONVULSION
     Dosage: UNK, UNKNOWN
     Route: 065
  2. PHENYTOIN [Suspect]
     Indication: CONVULSION
     Dosage: UNK, UNKNOWN
     Route: 065

REACTIONS (2)
  - Drug reaction with eosinophilia and systemic symptoms [Recovered/Resolved]
  - Encephalitis autoimmune [Recovered/Resolved]
